FAERS Safety Report 8286124-X (Version None)
Quarter: 2012Q2

REPORT INFORMATION
  Report Type: 
  Country: None (occurrence: None)
  Receive Date: 20120416
  Receipt Date: 20120405
  Transmission Date: 20120825
  Serious: No
  Sender: FDA-Public Use
  Company Number: US-BIOGENIDEC-2012BI012209

PATIENT
  Age: 37 Year
  Sex: Male

DRUGS (1)
  1. TYSABRI [Suspect]
     Indication: MULTIPLE SCLEROSIS
     Route: 042
     Dates: start: 20110929

REACTIONS (7)
  - BALANCE DISORDER [None]
  - MUSCLE SPASTICITY [None]
  - PAIN IN EXTREMITY [None]
  - MYALGIA [None]
  - FALL [None]
  - ARTHRALGIA [None]
  - WHEELCHAIR USER [None]
